FAERS Safety Report 5330856-X (Version None)
Quarter: 2007Q2

REPORT INFORMATION
  Report Type: 
  Country: None (occurrence: None)
  Receive Date: 20070522
  Receipt Date: 20070516
  Transmission Date: 20071010
  Serious: Yes (Other)
  Sender: FDA-Public Use
  Company Number: MX-ELI_LILLY_AND_COMPANY-MX200704000031

PATIENT
  Sex: Male

DRUGS (1)
  1. CIALIS [Suspect]
     Dosage: 5 MG, AS NEEDED
     Route: 065
     Dates: start: 20070301

REACTIONS (2)
  - STRESS AT WORK [None]
  - TRANSIENT ISCHAEMIC ATTACK [None]
